FAERS Safety Report 26111788 (Version 3)
Quarter: 2025Q4

REPORT INFORMATION
  Report Type: Spontaneous
  Country: US (occurrence: US)
  Receive Date: 20251202
  Receipt Date: 20251223
  Transmission Date: 20260118
  Serious: Yes (Hospitalization, Other)
  Sender: Kenvue
  Company Number: US-KENVUE-20251109151

PATIENT
  Age: 20 Year
  Sex: Female

DRUGS (2)
  1. AVEENO ECZEMA THERAPY NIGHTTIME ITCH RELIEF BALM [Suspect]
     Active Substance: OATMEAL
     Indication: Eczema
     Dosage: APPLIED ONCE. USED ONLY ONCE.
     Route: 048
     Dates: start: 20251122, end: 20251122
  2. unspecified biologicals [Concomitant]
     Indication: Eczema
     Route: 065

REACTIONS (3)
  - Application site pain [Recovering/Resolving]
  - Application site erythema [Recovering/Resolving]
  - Application site swelling [Recovering/Resolving]

NARRATIVE: CASE EVENT DATE: 20251122
